FAERS Safety Report 21021054 (Version 1)
Quarter: 2022Q2

REPORT INFORMATION
  Report Type: Report from Study
  Country: PL (occurrence: PL)
  Receive Date: 20220629
  Receipt Date: 20220629
  Transmission Date: 20220721
  Serious: Yes (Death, Life-Threatening, Hospitalization, Disabling, Other)
  Sender: FDA-Public Use
  Company Number: PL-CELGENE-POL-20200309758

PATIENT
  Age: 70 Year
  Sex: Female
  Weight: 84.5 kg

DRUGS (37)
  1. LENALIDOMIDE [Suspect]
     Active Substance: LENALIDOMIDE
     Indication: Plasma cell myeloma
     Route: 048
     Dates: start: 20180910, end: 20180916
  2. LENALIDOMIDE [Suspect]
     Active Substance: LENALIDOMIDE
     Dosage: DURATION: 5 DAYS 10 HRS 20 MIN
     Route: 048
     Dates: start: 20180813, end: 20180819
  3. DEXAMETHASONE [Suspect]
     Active Substance: DEXAMETHASONE
     Indication: Plasma cell myeloma
     Dosage: DAYS 1, 2, 4, 5, 8,9, 11, 12, 15, 22, 23, 25,26, 29, 30, 32, AND 33
     Route: 048
     Dates: start: 20180914, end: 20180914
  4. DEXAMETHASONE [Suspect]
     Active Substance: DEXAMETHASONE
     Route: 042
     Dates: start: 20180813, end: 20180813
  5. ISATUXIMAB [Suspect]
     Active Substance: ISATUXIMAB
     Indication: Plasma cell myeloma
     Dosage: 1 HR 30 MIN
     Route: 042
     Dates: start: 20180813, end: 20180813
  6. ISATUXIMAB [Suspect]
     Active Substance: ISATUXIMAB
     Route: 042
     Dates: start: 20180910, end: 20180910
  7. BORTEZOMIB [Suspect]
     Active Substance: BORTEZOMIB
     Indication: Plasma cell myeloma
     Dosage: OTHER (DAYS 1,4, 8, 11 AND DAYS 22, 25,29, 32)
     Route: 058
     Dates: start: 20180913, end: 20180913
  8. BORTEZOMIB [Suspect]
     Active Substance: BORTEZOMIB
     Dosage: OTHER (DAYS 1,4, 8, 11 AND DAYS 22, 25,29, 32)
     Route: 058
     Dates: start: 20180813, end: 20180813
  9. LEVOTHYROXINUM NATRICUM [Concomitant]
     Indication: Product used for unknown indication
     Route: 065
     Dates: start: 2005
  10. TRIMETHOPRIM [Concomitant]
     Active Substance: TRIMETHOPRIM
     Indication: Product used for unknown indication
     Route: 065
     Dates: start: 20180813
  11. ALPRAZOLAM [Concomitant]
     Active Substance: ALPRAZOLAM
     Indication: Product used for unknown indication
     Route: 065
     Dates: start: 201312
  12. MEROPENEM [Concomitant]
     Active Substance: MEROPENEM
     Indication: Product used for unknown indication
     Route: 042
     Dates: start: 20181005
  13. VANCOMYCIN [Concomitant]
     Active Substance: VANCOMYCIN
     Indication: Product used for unknown indication
     Dosage: FREQUENCY TEXT: NOT PROVIDED
     Route: 065
     Dates: start: 20181005
  14. VANCOMYCIN [Concomitant]
     Active Substance: VANCOMYCIN
     Dosage: FREQUENCY TEXT: NOT PROVIDED
     Route: 065
     Dates: start: 20180926, end: 20180926
  15. BISEPTOL [Concomitant]
     Active Substance: SULFAMETHOXAZOLE\TRIMETHOPRIM
     Indication: Product used for unknown indication
     Route: 065
     Dates: start: 20180813
  16. ASPIRIN [Concomitant]
     Active Substance: ASPIRIN
     Indication: Product used for unknown indication
     Route: 048
     Dates: start: 2012, end: 20180926
  17. BISOPROLOL [Concomitant]
     Active Substance: BISOPROLOL
     Indication: Product used for unknown indication
     Route: 065
     Dates: start: 2014
  18. FUROSEMIDE [Concomitant]
     Active Substance: FUROSEMIDE
     Indication: Product used for unknown indication
     Route: 065
     Dates: start: 2014
  19. SPIRONOLACTONE [Concomitant]
     Active Substance: SPIRONOLACTONE
     Indication: Product used for unknown indication
     Route: 065
     Dates: start: 2014
  20. Ranitydyne [Concomitant]
     Indication: Prophylaxis
     Dosage: 150
     Route: 048
     Dates: start: 20180813, end: 20180813
  21. Ranitydyne [Concomitant]
     Dosage: 150
     Route: 048
     Dates: start: 20180820, end: 20180820
  22. Ranitydyne [Concomitant]
     Dosage: 150
     Route: 048
     Dates: start: 20180903, end: 20180903
  23. Ranitydyne [Concomitant]
     Dosage: 150
     Route: 048
     Dates: start: 20180910, end: 20180910
  24. ACETAMINOPHEN [Concomitant]
     Active Substance: ACETAMINOPHEN
     Indication: Product used for unknown indication
     Dosage: 1000
     Route: 048
     Dates: start: 20180813, end: 20180813
  25. ACETAMINOPHEN [Concomitant]
     Active Substance: ACETAMINOPHEN
     Dosage: 1000
     Route: 048
     Dates: start: 20180820, end: 20180820
  26. ACETAMINOPHEN [Concomitant]
     Active Substance: ACETAMINOPHEN
     Dosage: 1000
     Route: 048
     Dates: start: 20180903, end: 20180903
  27. ACETAMINOPHEN [Concomitant]
     Active Substance: ACETAMINOPHEN
     Dosage: 1000
     Route: 048
     Dates: start: 20180910, end: 20180910
  28. ACETAMINOPHEN [Concomitant]
     Active Substance: ACETAMINOPHEN
     Dosage: 1000
     Route: 048
     Dates: start: 20180926, end: 20180926
  29. CLEMASTINE FUMARATE [Concomitant]
     Active Substance: CLEMASTINE FUMARATE
     Indication: Product used for unknown indication
     Dosage: 2
     Route: 042
     Dates: start: 20180813, end: 20180813
  30. CLEMASTINE FUMARATE [Concomitant]
     Active Substance: CLEMASTINE FUMARATE
     Dosage: 2
     Route: 042
     Dates: start: 20180820, end: 20180820
  31. CLEMASTINE FUMARATE [Concomitant]
     Active Substance: CLEMASTINE FUMARATE
     Dosage: 2
     Route: 042
     Dates: start: 20180903, end: 20180903
  32. CLEMASTINE FUMARATE [Concomitant]
     Active Substance: CLEMASTINE FUMARATE
     Dosage: 2
     Route: 042
     Dates: start: 20180910, end: 20180910
  33. CLEMASTINE FUMARATE [Concomitant]
     Active Substance: CLEMASTINE FUMARATE
     Dosage: 2
     Route: 042
     Dates: start: 20180926, end: 20180926
  34. OLANZAPINUM [Concomitant]
     Indication: Product used for unknown indication
     Route: 065
     Dates: start: 201312
  35. PREGABALIN [Concomitant]
     Active Substance: PREGABALIN
     Indication: Product used for unknown indication
     Route: 065
     Dates: start: 201312
  36. ENOXAPARIN [Concomitant]
     Active Substance: ENOXAPARIN
     Indication: Prophylaxis
     Route: 058
     Dates: start: 20180607, end: 20180926
  37. ACYCLOVIR [Concomitant]
     Active Substance: ACYCLOVIR
     Indication: Product used for unknown indication
     Route: 065
     Dates: start: 20180813

REACTIONS (7)
  - Cardiac arrest [Fatal]
  - Death [Fatal]
  - Cardio-respiratory arrest [Recovered/Resolved]
  - Atrial fibrillation [Not Recovered/Not Resolved]
  - Duodenal ulcer haemorrhage [Recovered/Resolved]
  - Duodenal ulcer haemorrhage [Recovered/Resolved]
  - Pneumonia [Not Recovered/Not Resolved]

NARRATIVE: CASE EVENT DATE: 20180820
